FAERS Safety Report 10040639 (Version 1)
Quarter: 2014Q1

REPORT INFORMATION
  Report Type: Spontaneous
  Country: US (occurrence: US)
  Receive Date: 20140327
  Receipt Date: 20140327
  Transmission Date: 20141002
  Serious: Yes (Hospitalization)
  Sender: FDA-Public Use
  Company Number: US-BAYER-2014-045469

PATIENT
  Age: 36 Year
  Sex: Female

DRUGS (18)
  1. YASMIN [Suspect]
  2. IBUPROFEN [Concomitant]
     Dosage: 800 MG, EVERY 6 TO 8 HOURS AS NEEDED
     Route: 048
  3. BEXTRA [Concomitant]
     Dosage: 20 MG, DAILY WITH FOOD
     Route: 048
  4. METHYLPREDNISOLONE [Concomitant]
     Dosage: 4 MG, DOSEPAK
  5. SKELAXIN [Concomitant]
     Indication: MUSCLE SPASMS
     Dosage: 800 MG, TID
     Route: 048
  6. HYDROCODONE W/APAP [Concomitant]
     Dosage: 7.5 /500 MG, BEDTIME
     Route: 048
  7. METHOCARBAMOL [Concomitant]
     Dosage: 750 MG, UNK
     Route: 048
  8. DICLOFENAC [Concomitant]
     Dosage: 75 MG, UNK
     Route: 048
  9. LORTAB [Concomitant]
     Dosage: 1 TABLET EVERY 4 TO 6 HOURS
     Route: 048
  10. CYCLOBENZAPRINE [Concomitant]
     Dosage: 10 MG, TID
     Route: 048
  11. DEMEROL [Concomitant]
     Route: 030
  12. PHENERGAN [Concomitant]
     Route: 030
  13. MORPHINE SULFATE [Concomitant]
     Dosage: 5 MG, UNK
     Route: 042
  14. GLUCOPHAGE [Concomitant]
  15. EFFEXOR [Concomitant]
  16. DOCUSATE [Concomitant]
  17. FLEXERIL [Concomitant]
  18. OXYCODONE [Concomitant]

REACTIONS (1)
  - Deep vein thrombosis [None]
